FAERS Safety Report 6258787-1 (Version None)
Quarter: 2009Q3

REPORT INFORMATION
  Report Type: 
  Country: None (occurrence: None)
  Receive Date: 20090707
  Receipt Date: 20090630
  Transmission Date: 20100115
  Serious: Yes (Other)
  Sender: FDA-Public Use
  Company Number: IT-MERCK-0905ITA00041

PATIENT
  Age: 84 Year
  Sex: Female

DRUGS (6)
  1. COZAAR [Suspect]
     Route: 048
     Dates: start: 20080508
  2. FUROSEMIDE SODIUM [Suspect]
     Route: 048
     Dates: start: 20080508, end: 20090508
  3. SELEGILINE HYDROCHLORIDE [Suspect]
     Route: 065
     Dates: start: 20080508
  4. ALLOPURINOL [Concomitant]
     Route: 065
  5. PRAVASTATIN SODIUM [Concomitant]
     Route: 065
  6. ASPIRIN [Concomitant]
     Route: 065

REACTIONS (2)
  - DEHYDRATION [None]
  - SYNCOPE [None]
